FAERS Safety Report 8547900-9 (Version None)
Quarter: 2012Q3

REPORT INFORMATION
  Report Type: 
  Country: None (occurrence: None)
  Receive Date: 20120728
  Receipt Date: 20101231
  Transmission Date: 20120928
  Serious: Yes (Other)
  Sender: FDA-Public Use
  Company Number: US-BAYER-201037218NA

PATIENT
  Age: 80 Year
  Sex: Female

DRUGS (2)
  1. ULTRAVIST 300 [Suspect]
     Indication: COMPUTERISED TOMOGRAM
     Dosage: 100 ML, ONCE
     Route: 042
     Dates: start: 20101011, end: 20101011
  2. READI-CAT [Concomitant]
     Indication: COMPUTERISED TOMOGRAM
     Dosage: UNK
     Route: 048
     Dates: start: 20101011, end: 20101011

REACTIONS (4)
  - ERYTHEMA [None]
  - LARYNGEAL OEDEMA [None]
  - PRURITUS [None]
  - URTICARIA [None]
